FAERS Safety Report 19146749 (Version 1)
Quarter: 2021Q2

REPORT INFORMATION
  Report Type: Spontaneous
  Country: GB (occurrence: GB)
  Receive Date: 20210416
  Receipt Date: 20210416
  Transmission Date: 20210717
  Serious: Yes (Death)
  Sender: FDA-Public Use
  Company Number: GB-PFIZER INC-2021404011

PATIENT

DRUGS (2)
  1. AVELUMAB [Suspect]
     Active Substance: AVELUMAB
  2. AXITINIB [Suspect]
     Active Substance: AXITINIB

REACTIONS (2)
  - Performance status decreased [Unknown]
  - Death [Fatal]
